FAERS Safety Report 19118364 (Version 1)
Quarter: 2021Q2

REPORT INFORMATION
  Report Type: Spontaneous
  Country: GB (occurrence: GB)
  Receive Date: 20210409
  Receipt Date: 20210409
  Transmission Date: 20210717
  Serious: Yes (Other)
  Sender: FDA-Public Use
  Company Number: GB-GILEAD-2021-0524732

PATIENT
  Age: 64 Year
  Sex: Male
  Weight: 106 kg

DRUGS (2)
  1. DESCOVY [Suspect]
     Active Substance: EMTRICITABINE\TENOFOVIR ALAFENAMIDE FUMARATE
     Indication: HIV INFECTION
     Dosage: UNK
     Route: 048
     Dates: start: 20190101
  2. EFAVIRENZ. [Concomitant]
     Active Substance: EFAVIRENZ
     Indication: ILL-DEFINED DISORDER

REACTIONS (1)
  - Weight increased [Not Recovered/Not Resolved]
